FAERS Safety Report 5401574-4 (Version None)
Quarter: 2007Q3

REPORT INFORMATION
  Report Type: 
  Country: None (occurrence: None)
  Receive Date: 20070731
  Receipt Date: 20070719
  Transmission Date: 20080115
  Serious: Yes (Other)
  Sender: FDA-Public Use
  Company Number: FR-PFIZER INC-2007060198

PATIENT
  Sex: Female

DRUGS (2)
  1. TRIFLUCAN [Suspect]
  2. ANTIDEPRESSANTS [Concomitant]

REACTIONS (1)
  - OROPHARYNGEAL CANDIDIASIS [None]
